FAERS Safety Report 10272672 (Version 2)
Quarter: 2014Q3

REPORT INFORMATION
  Report Type: Report from Study
  Country: CO (occurrence: CO)
  Receive Date: 20140702
  Receipt Date: 20140807
  Transmission Date: 20150326
  Serious: Yes (Death, Other)
  Sender: FDA-Public Use
  Company Number: PHHY2014CO080709

PATIENT
  Age: 50 Year
  Sex: Male

DRUGS (1)
  1. SANDOSTATIN LAR DEPOT [Suspect]
     Active Substance: OCTREOTIDE ACETATE
     Indication: NEUROENDOCRINE TUMOUR
     Dosage: 30 MG, QMO
     Route: 030
     Dates: start: 20130618

REACTIONS (4)
  - Respiratory distress [Fatal]
  - Metastases to liver [Unknown]
  - Metastases to lung [Unknown]
  - Respiratory arrest [Fatal]

NARRATIVE: CASE EVENT DATE: 20140609
